FAERS Safety Report 7142143-8 (Version None)
Quarter: 2010Q4

REPORT INFORMATION
  Report Type: 
  Country: None (occurrence: None)
  Receive Date: 20101202
  Receipt Date: 20101202
  Transmission Date: 20110411
  Serious: No
  Sender: FDA-Public Use
  Company Number: None

PATIENT

DRUGS (6)
  1. CHILDREN'S TYLENOL SUSPENSION [Suspect]
  2. CHILDREN'S TYLENOL SUSPENSION [Suspect]
  3. CHILDREN'S BENADRYL ALLERGY [Suspect]
  4. CHILDREN'S TYLENOL PLUS MULTI-SYMPTOM COLD [Suspect]
  5. CHILDREN'S TYLENOL PLUS COLD [Suspect]
  6. CHILDREN'S MOTRIN [Suspect]

REACTIONS (2)
  - PRODUCT CONTAMINATION [None]
  - PRODUCT QUALITY ISSUE [None]
